FAERS Safety Report 9048475 (Version 1)
Quarter: 2013Q1

REPORT INFORMATION
  Report Type: Spontaneous
  Country: US (occurrence: None)
  Receive Date: 20130130
  Receipt Date: 20130130
  Transmission Date: 20140127
  Serious: Yes (Hospitalization)
  Sender: FDA-Public Use
  Company Number: None

PATIENT
  Age: 86 Year
  Sex: Female
  Weight: 63.5 kg

DRUGS (11)
  1. PREDNISONE [Suspect]
     Indication: TEMPORAL ARTERITIS
     Dosage: CHRONIC
     Route: 048
  2. ASA [Suspect]
     Indication: CEREBROVASCULAR ACCIDENT
     Dosage: CHRONIC
     Route: 048
  3. SIMVASTATIN [Concomitant]
  4. KEPPRA [Concomitant]
  5. TYLENOL [Concomitant]
  6. HYDROCODONE/APAP [Concomitant]
  7. METOPROLOL [Concomitant]
  8. FERROUS SULFATE [Concomitant]
  9. CALTRATE [Concomitant]
  10. DORZOLAMIDE TIMOLOL [Concomitant]
  11. PROTONIX [Concomitant]

REACTIONS (7)
  - Abdominal pain [None]
  - Vomiting [None]
  - Upper gastrointestinal haemorrhage [None]
  - Gastritis [None]
  - Unresponsive to stimuli [None]
  - Convulsion [None]
  - Haematochezia [None]
